FAERS Safety Report 9615095 (Version 1)
Quarter: 2013Q4

REPORT INFORMATION
  Report Type: Spontaneous
  Country: US (occurrence: US)
  Receive Date: 20131011
  Receipt Date: 20131011
  Transmission Date: 20140711
  Serious: No
  Sender: FDA-Public Use
  Company Number: US-PFIZER INC-2013291162

PATIENT
  Sex: Male
  Weight: 70.3 kg

DRUGS (3)
  1. PRISTIQ [Suspect]
     Indication: DEPRESSION
     Dosage: 50 MG, DAILY
     Dates: start: 201309
  2. KLONOPIN [Concomitant]
     Indication: ANXIETY
     Dosage: 2 MG, UNK
  3. LAMICTAL [Concomitant]
     Indication: AFFECTIVE DISORDER
     Dosage: 50 MG, UNK

REACTIONS (1)
  - Somnolence [Unknown]
